FAERS Safety Report 8600671 (Version 2)
Quarter: 2012Q4

REPORT INFORMATION
  Report Type: 
  Country: US (occurrence: US)
  Receive Date: 20120606
  Receipt Date: 20121026
  Transmission Date: 20130627
  Serious: Yes (Hospitalization)
  Sender: FDA-Public Use
  Company Number: US-BAYER-2012-055468

PATIENT
  Age: 26 Year
  Sex: Female
  Weight: 73.47 kg

DRUGS (10)
  1. YAZ [Suspect]
     Indication: BIRTH CONTROL
     Dosage: UNK
     Dates: start: 200704, end: 200709
  2. YAZ [Suspect]
     Indication: BIRTH CONTROL
     Dosage: UNK
     Dates: start: 200805, end: 200805
  3. YAZ [Suspect]
     Indication: BIRTH CONTROL
     Dosage: UNK
     Dates: start: 200807, end: 200902
  4. RANITIDINE [Concomitant]
     Dosage: 150 mg, BID
     Route: 048
  5. TERCONAZOLE [Concomitant]
     Dosage: One applicatorful at bedtime for 3 nights
     Route: 067
  6. IMITREX [Concomitant]
     Indication: MIGRAINE HEADACHE
     Dosage: 100 mg, Take one, may repeat one time in 2  hours if needed
     Route: 048
  7. CITALOPRAM HYDROBROMIDE [Concomitant]
     Dosage: 20 mg, daily
     Route: 048
  8. PROPRANOLOL HYDROCHLORIDE [Concomitant]
     Dosage: 40 mg, BID
     Route: 048
  9. OMEPRAZOLE [Concomitant]
     Dosage: 20 mg, daily
     Route: 048
  10. TYLENOL [Concomitant]
     Dosage: UNK UNK, PRN

REACTIONS (6)
  - Cholelithiasis [None]
  - Cholecystitis acute [None]
  - Injury [None]
  - Pain [None]
  - Fear of disease [None]
  - Pain [None]
